FAERS Safety Report 19032466 (Version 1)
Quarter: 2021Q1

REPORT INFORMATION
  Report Type: Spontaneous
  Country: GB (occurrence: GB)
  Receive Date: 20210319
  Receipt Date: 20210319
  Transmission Date: 20210420
  Serious: Yes (Other)
  Sender: FDA-Public Use
  Company Number: GB-MYLANLABS-2021M1014471

PATIENT
  Age: 16 Year
  Sex: Female
  Weight: 58 kg

DRUGS (5)
  1. OMEPRAZOLE. [Suspect]
     Active Substance: OMEPRAZOLE
     Dosage: IT WAS 4 DAILY NOW 2
     Route: 048
  2. ACIDEX ADVANCE [Concomitant]
     Indication: ILL-DEFINED DISORDER
  3. OMEPRAZOLE. [Suspect]
     Active Substance: OMEPRAZOLE
     Indication: GASTROOESOPHAGEAL REFLUX DISEASE
     Dosage: IT WAS 4 DAILY NOW 2
     Route: 048
     Dates: start: 20201002, end: 20210307
  4. ACIDEX ADVANCE [Concomitant]
     Indication: DYSPEPSIA
  5. BECONASE AQ [Concomitant]
     Active Substance: BECLOMETHASONE DIPROPIONATE MONOHYDRATE
     Indication: ILL-DEFINED DISORDER

REACTIONS (2)
  - Abdominal pain upper [Not Recovered/Not Resolved]
  - Intentional product use issue [Unknown]

NARRATIVE: CASE EVENT DATE: 20210118
